FAERS Safety Report 8984277 (Version 6)
Quarter: 2013Q4

REPORT INFORMATION
  Report Type: Spontaneous
  Country: US (occurrence: US)
  Receive Date: 20121226
  Receipt Date: 20131022
  Transmission Date: 20140711
  Serious: Yes (Other)
  Sender: FDA-Public Use
  Company Number: US-JNJFOC-20121208299

PATIENT
  Sex: Female
  Weight: 107 kg

DRUGS (5)
  1. REMICADE [Suspect]
     Indication: PSORIATIC ARTHROPATHY
     Route: 042
  2. HUMIRA [Suspect]
     Indication: RHEUMATOID ARTHRITIS
     Route: 058
     Dates: start: 201004
  3. BENADRYL [Concomitant]
     Indication: PREMEDICATION
     Route: 065
  4. DOLOBID [Concomitant]
     Indication: RHEUMATOID ARTHRITIS
     Dosage: DOSE 500
     Route: 065
     Dates: start: 201103
  5. CARDIZEM [Concomitant]
     Indication: HYPERTENSION
     Dosage: DOSE: 240
     Route: 065
     Dates: start: 201002

REACTIONS (8)
  - Chest discomfort [Recovered/Resolved]
  - Infusion related reaction [Recovered/Resolved]
  - Palpitations [Recovered/Resolved]
  - Dyspnoea [Recovered/Resolved]
  - Dyspnoea [Recovered/Resolved]
  - Pruritus [Recovered/Resolved]
  - Fear [Recovered/Resolved]
  - Rash erythematous [Recovered/Resolved]
